FAERS Safety Report 8886823 (Version 3)
Quarter: 2013Q2

REPORT INFORMATION
  Report Type: Spontaneous
  Country: PL (occurrence: PL)
  Receive Date: 20121105
  Receipt Date: 20130516
  Transmission Date: 20140414
  Serious: Yes (Life-Threatening, Other)
  Sender: FDA-Public Use
  Company Number: PL-ROCHE-1151538

PATIENT
  Age: 63 Year
  Sex: Female

DRUGS (2)
  1. OMALIZUMAB [Suspect]
     Indication: ASTHMA
     Dosage: 2DF
     Route: 058
  2. METHYLPREDNISOLON [Concomitant]
     Route: 065

REACTIONS (4)
  - Hepatic echinococciasis [Unknown]
  - Musculoskeletal chest pain [Unknown]
  - Asthma [Recovered/Resolved]
  - Eosinophilia [Unknown]
